FAERS Safety Report 5656337-1 (Version None)
Quarter: 2008Q1

REPORT INFORMATION
  Report Type: 
  Country: None (occurrence: None)
  Receive Date: 20080309
  Receipt Date: 20071001
  Transmission Date: 20080703
  Serious: No
  Sender: FDA-Public Use
  Company Number: US-BAYER-200713183BCC

PATIENT
  Age: 61 Year
  Sex: Female
  Weight: 65 kg

DRUGS (4)
  1. ALEVE [Suspect]
     Indication: OSTEOARTHRITIS
     Route: 048
     Dates: start: 20070928, end: 20071001
  2. HYDROCHLOROTHIAZIDE [Concomitant]
  3. PREDNISONE TAB [Concomitant]
  4. PLAQUENIL [Concomitant]

REACTIONS (2)
  - EYE SWELLING [None]
  - WEIGHT INCREASED [None]
